FAERS Safety Report 17194848 (Version 1)
Quarter: 2019Q4

REPORT INFORMATION
  Report Type: Spontaneous
  Country: BR (occurrence: BR)
  Receive Date: 20191224
  Receipt Date: 20191224
  Transmission Date: 20200122
  Serious: Yes (Other)
  Sender: FDA-Public Use
  Company Number: BR-GLAXOSMITHKLINE-BR2019AMR224761

PATIENT
  Age: 3 Year
  Sex: Male

DRUGS (2)
  1. MONTELAIR [Suspect]
     Active Substance: MONTELUKAST SODIUM
     Indication: PRODUCT USED FOR UNKNOWN INDICATION
     Dosage: UNK
  2. AVAMYS [Suspect]
     Active Substance: FLUTICASONE FUROATE
     Indication: ADENOIDAL DISORDER
     Dosage: UNK

REACTIONS (3)
  - Drug dependence [Unknown]
  - Product use issue [Unknown]
  - Product complaint [Unknown]
